FAERS Safety Report 16820433 (Version 1)
Quarter: 2019Q3

REPORT INFORMATION
  Report Type: Spontaneous
  Country: FR (occurrence: FR)
  Receive Date: 20190918
  Receipt Date: 20190918
  Transmission Date: 20191005
  Serious: Yes (Other)
  Sender: FDA-Public Use
  Company Number: FR-SUN PHARMACEUTICAL INDUSTRIES LTD-2019RR-220993

PATIENT
  Age: 61 Year
  Sex: Female

DRUGS (1)
  1. ROSUVASTATIN. [Suspect]
     Active Substance: ROSUVASTATIN
     Indication: PRODUCT USED FOR UNKNOWN INDICATION
     Dosage: 5 MILLIGRAM, DAILY
     Route: 065

REACTIONS (7)
  - Immune-mediated necrotising myopathy [Recovering/Resolving]
  - Erythema [Recovering/Resolving]
  - Systemic lupus erythematosus [Recovered/Resolved]
  - Myopathy [Recovering/Resolving]
  - Myalgia [Recovering/Resolving]
  - Neutrophilic dermatosis [Recovering/Resolving]
  - Blood creatine phosphokinase increased [Recovering/Resolving]
